FAERS Safety Report 8299320-2 (Version None)
Quarter: 2012Q2

REPORT INFORMATION
  Report Type: 
  Country: None (occurrence: None)
  Receive Date: 20120419
  Receipt Date: 20120410
  Transmission Date: 20120825
  Serious: Yes (Other)
  Sender: FDA-Public Use
  Company Number: CA-ABBOTT-12P-028-0921805-00

PATIENT
  Sex: Female

DRUGS (1)
  1. HUMIRA [Suspect]
     Indication: PSORIASIS
     Route: 058
     Dates: start: 20110825, end: 20111201

REACTIONS (8)
  - CEREBRAL SMALL VESSEL ISCHAEMIC DISEASE [None]
  - MULTIPLE SCLEROSIS [None]
  - LUMBAR PUNCTURE ABNORMAL [None]
  - OPTIC NEURITIS [None]
  - DIPLOPIA [None]
  - DIZZINESS [None]
  - HETEROPHORIA [None]
  - DISORDER OF GLOBE [None]
